FAERS Safety Report 5914617-6 (Version None)
Quarter: 2008Q4

REPORT INFORMATION
  Report Type: 
  Country: None (occurrence: None)
  Receive Date: 20081008
  Receipt Date: 20080929
  Transmission Date: 20090506
  Serious: Yes (Other)
  Sender: FDA-Public Use
  Company Number: 2008SP019927

PATIENT
  Sex: Female

DRUGS (2)
  1. NASONEX [Suspect]
     Indication: DRUG USE FOR UNKNOWN INDICATION
     Dates: end: 20080928
  2. PROAIR HFA [Concomitant]

REACTIONS (2)
  - BRONCHITIS [None]
  - HAEMOPTYSIS [None]
